FAERS Safety Report 14247778 (Version 1)
Quarter: 2017Q4

REPORT INFORMATION
  Report Type: Spontaneous
  Country: KR (occurrence: KR)
  Receive Date: 20171204
  Receipt Date: 20171204
  Transmission Date: 20180321
  Serious: Yes (Other)
  Sender: FDA-Public Use
  Company Number: KR-PFIZER INC-2017511020

PATIENT
  Sex: Female

DRUGS (1)
  1. LYRICA [Suspect]
     Active Substance: PREGABALIN
     Indication: PERIPHERAL PARALYSIS
     Dosage: UNK
     Route: 048
     Dates: start: 20171127

REACTIONS (7)
  - Nausea [Unknown]
  - Dizziness [Unknown]
  - Haematochezia [Unknown]
  - Eye pain [Unknown]
  - Headache [Unknown]
  - Drug ineffective [Unknown]
  - Somnolence [Unknown]

NARRATIVE: CASE EVENT DATE: 201711
